FAERS Safety Report 9232157 (Version 4)
Quarter: 2014Q3

REPORT INFORMATION
  Report Type: Report from Study
  Country: US (occurrence: US)
  Receive Date: 20130415
  Receipt Date: 20140829
  Transmission Date: 20150326
  Serious: Yes (Other)
  Sender: FDA-Public Use
  Company Number: US-PFIZER INC-2013113022

PATIENT
  Age: 54 Year
  Sex: Female

DRUGS (16)
  1. NERATINIB [Suspect]
     Active Substance: NERATINIB
     Indication: BREAST CANCER
     Dosage: 240 MG, DAILY
     Route: 048
     Dates: start: 20130309, end: 20130401
  2. VITAMIN D [Concomitant]
     Active Substance: CHOLECALCIFEROL
     Dosage: UNK
  3. LUNESTA [Concomitant]
     Active Substance: ESZOPICLONE
     Dosage: UNK
  4. FISH OIL [Concomitant]
     Active Substance: FISH OIL
     Dosage: UNK
  5. TEMSIROLIMUS [Suspect]
     Active Substance: TEMSIROLIMUS
     Indication: BREAST CANCER
     Dosage: 8 MG, WEEKLY
     Route: 042
     Dates: start: 20130309, end: 20130325
  6. VITAMIN A [Concomitant]
     Active Substance: VITAMIN A
     Dosage: UNK
  7. VITAMIN B COMPLEX [Concomitant]
     Active Substance: CYANOCOBALAMIN\DEXPANTHENOL\NIACINAMIDE\PYRIDOXINE HYDROCHLORIDE\RIBOFLAVIN 5^-PHOSPHATE SODIUM\THIAMINE HYDROCHLORIDE\VITAMIN B COMPLEX
     Dosage: UNK
  8. HYDROXYZINE [Concomitant]
     Active Substance: HYDROXYZINE\HYDROXYZINE HYDROCHLORIDE
     Dosage: UNK
     Dates: start: 20130325, end: 20130408
  9. LYRICA [Concomitant]
     Active Substance: PREGABALIN
     Dosage: UNK
  10. DIPHENHYDRAMINE [Concomitant]
     Active Substance: DIPHENHYDRAMINE
     Dosage: UNK
     Dates: start: 20130304, end: 20130318
  11. NERATINIB [Suspect]
     Active Substance: NERATINIB
     Dosage: 160 MG, DAILY
     Route: 048
     Dates: start: 20130402, end: 20130503
  12. METFORMIN [Concomitant]
     Active Substance: METFORMIN HYDROCHLORIDE
     Dosage: UNK
  13. MORPHINE [Concomitant]
     Active Substance: MORPHINE
     Dosage: UNK
  14. XANAX [Concomitant]
     Active Substance: ALPRAZOLAM
     Dosage: UNK
  15. IMODIUM [Concomitant]
     Active Substance: LOPERAMIDE HYDROCHLORIDE
     Dosage: UNK
     Dates: start: 20130304, end: 20130430
  16. TEMSIROLIMUS [Suspect]
     Active Substance: TEMSIROLIMUS
     Dosage: 8 MG, WEEKLY
     Route: 042
     Dates: start: 20130408, end: 20130429

REACTIONS (1)
  - Neuropathy peripheral [Recovered/Resolved]

NARRATIVE: CASE EVENT DATE: 201303
